FAERS Safety Report 26102832 (Version 1)
Quarter: 2025Q4

REPORT INFORMATION
  Report Type: Spontaneous
  Country: US (occurrence: US)
  Receive Date: 20251128
  Receipt Date: 20251128
  Transmission Date: 20260118
  Serious: No
  Sender: NEUROCRINE BIOSCIENCES
  Company Number: US-NEUROCRINE BIOSCIENCES INC.-2025NBI15512

PATIENT

DRUGS (1)
  1. CRENESSITY [Suspect]
     Active Substance: CRINECERFONT
     Indication: Product used for unknown indication
     Dosage: 100 MILLIGRAM, BID
     Route: 048

REACTIONS (1)
  - Diarrhoea [Unknown]
